FAERS Safety Report 5219131-1 (Version None)
Quarter: 2007Q1

REPORT INFORMATION
  Report Type: 
  Country: None (occurrence: None)
  Receive Date: 20070124
  Receipt Date: 20070124
  Transmission Date: 20070707
  Serious: Yes (Other)
  Sender: FDA-Public Use
  Company Number: None

PATIENT
  Age: 46 Year
  Sex: Female

DRUGS (2)
  1. EFFEXOR XR [Suspect]
     Indication: DEPRESSION
     Dosage: 150MG QD ONCE PO DAILY
     Route: 048
     Dates: start: 20040902
  2. BUSPIRONE HCL [Concomitant]

REACTIONS (1)
  - OPEN ANGLE GLAUCOMA [None]
